FAERS Safety Report 7226194-0 (Version None)
Quarter: 2011Q1

REPORT INFORMATION
  Report Type: 
  Country: None (occurrence: None)
  Receive Date: 20110114
  Receipt Date: 20101223
  Transmission Date: 20110831
  Serious: Yes (Hospitalization, Other)
  Sender: FDA-Public Use
  Company Number: PHHY2010TW87821

PATIENT
  Age: 58 Year
  Sex: Male

DRUGS (7)
  1. ESCITALOPRAM [Suspect]
     Dosage: 10 MG, QD
  2. VENLAFAXINE [Suspect]
     Dosage: 37.5 TO 225 MG/DAY
  3. FLUOXETINE [Suspect]
     Dosage: 20 TO 40 MG/DAY
  4. MIRTAZAPINE [Suspect]
     Dosage: 15 MG, QD
  5. PAROXETINE HCL [Suspect]
     Dosage: 10 TO 40 MG/DAY
  6. TRAZODONE HCL [Suspect]
     Dosage: 15 TO 125 MG/DAY
  7. DULOXETIME HYDROCHLORIDE [Suspect]
     Dosage: 30 TO 60 MG/DAY
     Dates: start: 20070401

REACTIONS (6)
  - DYSTONIA [None]
  - TRISMUS [None]
  - CHEST DISCOMFORT [None]
  - INSOMNIA [None]
  - TARDIVE DYSKINESIA [None]
  - DEPRESSED MOOD [None]
